FAERS Safety Report 6771960-9 (Version None)
Quarter: 2010Q2

REPORT INFORMATION
  Report Type: 
  Country: None (occurrence: None)
  Receive Date: 20100616
  Receipt Date: 20100224
  Transmission Date: 20101027
  Serious: No
  Sender: FDA-Public Use
  Company Number: US-ASTRAZENECA-2010SE08573

PATIENT
  Sex: Female

DRUGS (1)
  1. RHINOCORT [Suspect]
     Route: 045
     Dates: start: 20090101

REACTIONS (3)
  - MUCOSAL EROSION [None]
  - NASAL DISCOMFORT [None]
  - THROAT IRRITATION [None]
